FAERS Safety Report 17797242 (Version 1)
Quarter: 2020Q2

REPORT INFORMATION
  Report Type: Spontaneous
  Country: DE (occurrence: DE)
  Receive Date: 20200518
  Receipt Date: 20200518
  Transmission Date: 20200714
  Serious: Yes (Hospitalization)
  Sender: FDA-Public Use
  Company Number: DE-TEVA-2020-DE-1235665

PATIENT
  Age: 63 Year
  Sex: Male
  Weight: 95 kg

DRUGS (13)
  1. SPIRIVA [Concomitant]
     Active Substance: TIOTROPIUM BROMIDE MONOHYDRATE
     Dosage: 18 MICROGRAM DAILY;  0-0-1-0
  2. DEKRISTOL 20000I.E. [Concomitant]
     Dosage: 20,000 IU / WEEK, MONDAYS
  3. PARACETAMOL [Concomitant]
     Active Substance: ACETAMINOPHEN
     Dosage: 500 MG, IF NECESSARY
  4. AMOXICLAV 875/125-1A PHARMA [Concomitant]
     Dosage: 3 DF,125|875 MG, 1-1-1-0
  5. ATMADISC 25MCG/125MCG [Concomitant]
     Dosage: 2 DOSAGE FORMS DAILY; 25|125 MCG, 1-0-1-0
  6. RITUXIMAB. [Suspect]
     Active Substance: RITUXIMAB
     Dosage: ACCORDING TO THE SCHEME
  7. ELIQUIS [Concomitant]
     Active Substance: APIXABAN
     Dosage: 10 MILLIGRAM DAILY; 1-0-1-0
  8. ALLOPURINOL. [Concomitant]
     Active Substance: ALLOPURINOL
     Dosage: 200 MILLIGRAM DAILY;  1-0-1-0
  9. IBUPROFEN. [Concomitant]
     Active Substance: IBUPROFEN
     Dosage: 600 MG
  10. FLUDARABIN [Suspect]
     Active Substance: FLUDARABINE PHOSPHATE
     Dosage: ACCORDING TO THE SCHEME
     Route: 065
  11. CYCLOPHOSPHAMID [Suspect]
     Active Substance: CYCLOPHOSPHAMIDE
     Dosage: ACCORDING TO THE SCHEME
  12. COTRIM FORTE 800MG/160MG [Concomitant]
     Dosage: 3 DF,800|160 MG/WEEK, 1-0-0-0
  13. PANTOPRAZOL [Concomitant]
     Active Substance: PANTOPRAZOLE SODIUM
     Dosage: 40 MILLIGRAM DAILY; 1-0-0-0

REACTIONS (5)
  - General physical health deterioration [Unknown]
  - Cough [Unknown]
  - Weight increased [Unknown]
  - Pyrexia [Unknown]
  - Nausea [Unknown]
